FAERS Safety Report 10374659 (Version 1)
Quarter: 2014Q1

REPORT INFORMATION
  Report Type: Spontaneous
  Country: US (occurrence: None)
  Receive Date: 20130723
  Receipt Date: 20130723
  Transmission Date: 20141002
  Serious: Yes (Hospitalization, Other)
  Sender: FDA-Public Use
  Company Number: None

PATIENT
  Age: 77 Year
  Sex: Female

DRUGS (4)
  1. INVOKANA [Suspect]
  2. INVOKANA [Suspect]
  3. GLIPIZIDE [Concomitant]
  4. NPH INSULIN [Concomitant]

REACTIONS (3)
  - Diabetic ketoacidosis [None]
  - Dehydration [None]
  - Renal failure acute [None]
